FAERS Safety Report 22323004 (Version 1)
Quarter: 2023Q2

REPORT INFORMATION
  Report Type: Spontaneous
  Country: FR (occurrence: FR)
  Receive Date: 20230516
  Receipt Date: 20230516
  Transmission Date: 20230722
  Serious: Yes (Life-Threatening, Other)
  Sender: FDA-Public Use
  Company Number: None

PATIENT
  Age: 69 Year
  Sex: Female

DRUGS (25)
  1. DOXORUBICIN [Suspect]
     Active Substance: DOXORUBICIN
     Indication: Follicular lymphoma
     Dosage: START DATE: JUN-2016, STOP DATE: DEC-2016
     Route: 042
  2. CYCLOPHOSPHAMIDE [Suspect]
     Active Substance: CYCLOPHOSPHAMIDE
     Indication: Follicular lymphoma
     Dosage: START DATE: JUN-2016, STOP DATE: DEC-2016
     Route: 042
  3. CARMUSTINE [Suspect]
     Active Substance: CARMUSTINE
     Indication: Follicular lymphoma
     Dosage: START AND STOP DATE: JUL-2019
     Route: 048
  4. DEXAMETHASONE [Suspect]
     Active Substance: DEXAMETHASONE
     Indication: Follicular lymphoma
     Dosage: 40 MG, 1 CYCLICAL
     Route: 048
  5. VINCRISTINE SULFATE [Suspect]
     Active Substance: VINCRISTINE SULFATE
     Indication: Follicular lymphoma
     Dosage: START DATE: JUN-2016, STOP DATE: DEC-2016
     Route: 042
  6. OXALIPLATIN [Suspect]
     Active Substance: OXALIPLATIN
     Indication: Follicular lymphoma
     Dosage: START AND STOP DATE DATE: 2021
     Route: 042
  7. LEUCOVORIN CALCIUM [Suspect]
     Active Substance: LEUCOVORIN CALCIUM
     Indication: Vitamin supplementation
     Dosage: 1 DOSAGE FORM, ONCE IN A WEEK
     Route: 048
  8. CARBOPLATIN [Suspect]
     Active Substance: CARBOPLATIN
     Indication: Follicular lymphoma
     Dosage: START DATE: JAN-2019, STOP DATE: JUL-2019
     Route: 042
  9. CYTARABINE [Suspect]
     Active Substance: CYTARABINE
     Indication: Follicular lymphoma
     Route: 042
  10. KARDEGIC [Suspect]
     Active Substance: ASPIRIN DL-LYSINE
     Indication: Cardiovascular event prophylaxis
     Dosage: 1 DOSAGE FORM, ONCE IN A WEEK, DOSAGE FORM: POWDER FOR ORAL SOLUTION IN SACHET-DOSE
     Route: 048
  11. PREDNISONE [Suspect]
     Active Substance: PREDNISONE
     Indication: Follicular lymphoma
     Dosage: START DATE: JUN-2016, STOP DATE: DEC-2016
     Route: 042
  12. MELPHALAN [Suspect]
     Active Substance: MELPHALAN
     Indication: Follicular lymphoma
     Dosage: START AND STOP DATE: JUL-2019
     Route: 042
  13. OXAZEPAM [Suspect]
     Active Substance: OXAZEPAM
     Indication: Anxiety
     Dosage: 2 DOSAGE FORM, ONCE DAILY
     Route: 048
  14. TAFASITAMAB [Suspect]
     Active Substance: TAFASITAMAB
     Indication: Follicular lymphoma
     Dosage: START DATE: JUL-2022
     Route: 048
  15. BACTRIM [Suspect]
     Active Substance: SULFAMETHOXAZOLE\TRIMETHOPRIM
     Indication: Pneumocystis jirovecii pneumonia
     Dosage: 3 DOSAGE FORM, ONCE IN A WEEK
     Route: 048
  16. PENICILLIN V [Suspect]
     Active Substance: PENICILLIN V
     Indication: Antibiotic prophylaxis
     Dosage: 2 DOSAGE FORM, ONCE IN A WEEK, DOSAGE FORM: SCORED TABLET
     Route: 048
  17. GEMCITABINE [Suspect]
     Active Substance: GEMCITABINE
     Indication: Follicular lymphoma
     Dosage: START AND STOP DATE: 2021
     Route: 042
  18. SERTRALINE [Suspect]
     Active Substance: SERTRALINE HYDROCHLORIDE
     Indication: Depression
     Dosage: 200 MG, ONCE DAILY, BASE
     Route: 048
  19. RITUXIMAB [Suspect]
     Active Substance: RITUXIMAB
     Indication: Follicular lymphoma
     Dosage: START DATE: JAN-2019, STOP DATE: JUL-2019
     Route: 042
  20. RITUXIMAB [Suspect]
     Active Substance: RITUXIMAB
     Dosage: START DATE: AUG-2019, STOP DATE: MAR-2021
     Route: 042
  21. RITUXIMAB [Suspect]
     Active Substance: RITUXIMAB
     Dosage: START DATE: JUN-2016, STOP DATE: DEC-2016
     Route: 042
  22. REVLIMID [Suspect]
     Active Substance: LENALIDOMIDE
     Indication: Follicular lymphoma
     Dosage: START DATE: JUL-2022, STOP DATE: FEB-2023, 21 DOSAGE FORM, ONCE IN 28 DAYS
     Route: 048
  23. ATENOLOL [Suspect]
     Active Substance: ATENOLOL
     Indication: Extrasystoles
     Dosage: 100 MG, ONCE DAILY
     Route: 048
  24. VALACYCLOVIR HYDROCHLORIDE [Suspect]
     Active Substance: VALACYCLOVIR HYDROCHLORIDE
     Indication: Antiviral prophylaxis
     Dosage: 1000 MG, ONCE DAILY
     Route: 048
  25. ETOPOSIDE [Suspect]
     Active Substance: ETOPOSIDE
     Indication: Follicular lymphoma
     Dosage: START STOP DATE: JUL-2019
     Route: 042

REACTIONS (1)
  - Gastric cancer [Not Recovered/Not Resolved]

NARRATIVE: CASE EVENT DATE: 20230207
